FAERS Safety Report 6804443-8 (Version None)
Quarter: 2010Q2

REPORT INFORMATION
  Report Type: 
  Country: None (occurrence: None)
  Receive Date: 20100628
  Receipt Date: 20070404
  Transmission Date: 20101027
  Serious: Yes (Other)
  Sender: FDA-Public Use
  Company Number: US-PFIZER INC-2007027020

PATIENT
  Sex: Female

DRUGS (4)
  1. GEODON [Suspect]
  2. DEPAKOTE [Concomitant]
  3. ANTABUSE [Concomitant]
  4. ANTIBIOTICS [Concomitant]

REACTIONS (2)
  - BLOOD PRESSURE INCREASED [None]
  - TREMOR [None]
